FAERS Safety Report 7514823-3 (Version None)
Quarter: 2011Q2

REPORT INFORMATION
  Report Type: 
  Country: None (occurrence: None)
  Receive Date: 20110601
  Receipt Date: 20110523
  Transmission Date: 20111010
  Serious: Yes (Hospitalization, Disabling, Other)
  Sender: FDA-Public Use
  Company Number: JP-JNJFOC-20100801892

PATIENT
  Sex: Female
  Weight: 47 kg

DRUGS (14)
  1. DEXALTIN [Concomitant]
     Route: 061
     Dates: start: 20101106
  2. ETODOLAC [Concomitant]
     Indication: CANCER PAIN
     Route: 048
     Dates: start: 20100512, end: 20100624
  3. OXYCONTIN [Concomitant]
     Indication: CANCER PAIN
     Route: 048
     Dates: start: 20100512, end: 20100617
  4. DOXIL [Suspect]
     Dosage: CYCLE 2
     Route: 042
  5. DOXIL [Suspect]
     Dosage: CYCLE 4
     Route: 042
     Dates: start: 20110301, end: 20110301
  6. DOXIL [Suspect]
     Dosage: CYCLE 4
     Route: 042
     Dates: start: 20100803, end: 20100803
  7. DOXIL [Suspect]
     Dosage: CYCLE 3
     Route: 042
  8. LOXONIN [Concomitant]
     Indication: ANALGESIC THERAPY
     Route: 048
     Dates: start: 20110201, end: 20110301
  9. RAMELTEON [Concomitant]
     Indication: NAUSEA
     Route: 042
     Dates: start: 20101009, end: 20110301
  10. ORGADRONE [Concomitant]
     Route: 042
     Dates: start: 20100512, end: 20100803
  11. DOXIL [Suspect]
     Indication: OVARIAN CANCER RECURRENT
     Dosage: CYCLE 1
     Route: 042
     Dates: start: 20100512, end: 20100512
  12. DEXALTIN [Concomitant]
     Indication: STOMATITIS
     Route: 061
     Dates: start: 20100706, end: 20100831
  13. RAMELTEON [Concomitant]
     Route: 042
     Dates: start: 20100512, end: 20100803
  14. ORGADRONE [Concomitant]
     Indication: NAUSEA
     Route: 042
     Dates: start: 20101109, end: 20110301

REACTIONS (6)
  - CONSTIPATION [None]
  - NAUSEA [None]
  - BLISTER [None]
  - STOMATITIS [None]
  - INTERSTITIAL LUNG DISEASE [None]
  - ULCER [None]
